FAERS Safety Report 12812455 (Version 1)
Quarter: 2016Q4

REPORT INFORMATION
  Report Type: Spontaneous
  Country: BR (occurrence: BR)
  Receive Date: 20161005
  Receipt Date: 20161005
  Transmission Date: 20170207
  Serious: Yes (Other)
  Sender: FDA-Public Use
  Company Number: BR-WARNER CHILCOTT, LLC-1058021

PATIENT
  Age: 55 Year
  Sex: Female
  Weight: 60.14 kg

DRUGS (3)
  1. ACTONEL [Suspect]
     Active Substance: RISEDRONATE SODIUM
     Indication: OSTEOPENIA
     Route: 048
     Dates: start: 201607, end: 201609
  2. TIBOLONE [Concomitant]
     Active Substance: TIBOLONE
  3. POLIVITAMINE [Concomitant]
     Active Substance: VITAMINS
     Dates: end: 201609

REACTIONS (2)
  - Blister [Unknown]
  - Rash macular [Unknown]

NARRATIVE: CASE EVENT DATE: 201609
